FAERS Safety Report 8957844 (Version 1)
Quarter: 2012Q4

REPORT INFORMATION
  Report Type: 
  Country: US (occurrence: US)
  Receive Date: 20121211
  Receipt Date: 20121211
  Transmission Date: 20130627
  Serious: No
  Sender: FDA-Public Use
  Company Number: US-JNJFOC-20121113957

PATIENT
  Sex: Male
  Weight: 104.33 kg

DRUGS (6)
  1. DURAGESIC [Suspect]
     Indication: INTERVERTEBRAL DISC DEGENERATION
     Route: 062
  2. DURAGESIC [Suspect]
     Indication: INTERVERTEBRAL DISC DEGENERATION
     Route: 062
  3. DURAGESIC [Suspect]
     Indication: INTERVERTEBRAL DISC PROTRUSION
     Route: 062
  4. DURAGESIC [Suspect]
     Indication: INTERVERTEBRAL DISC PROTRUSION
     Route: 062
  5. KLONOPIN [Concomitant]
     Indication: ANGER
     Route: 065
  6. KLONOPIN [Concomitant]
     Indication: DEPRESSION
     Route: 065

REACTIONS (6)
  - Hyperhidrosis [Not Recovered/Not Resolved]
  - Wrong technique in drug usage process [Unknown]
  - Product quality issue [Unknown]
  - Wrong technique in drug usage process [Recovered/Resolved]
  - Mental status changes [Recovered/Resolved]
  - Pain in extremity [Recovered/Resolved]
